FAERS Safety Report 5162723-9 (Version None)
Quarter: 2006Q4

REPORT INFORMATION
  Report Type: 
  Country: None (occurrence: None)
  Receive Date: 20061201
  Receipt Date: 20060418
  Transmission Date: 20070319
  Serious: No
  Sender: FDA-Public Use
  Company Number: US-GLAXOSMITHKLINE-A0602194A

PATIENT
  Sex: Female

DRUGS (4)
  1. AUGMENTIN XR [Suspect]
     Indication: DIVERTICULITIS
     Dosage: 1000MG TWICE PER DAY
     Route: 048
     Dates: start: 20060411
  2. TOPROL-XL [Concomitant]
  3. VITAMIN [Concomitant]
  4. ASPIRIN [Concomitant]

REACTIONS (1)
  - HEADACHE [None]
